FAERS Safety Report 17820694 (Version 1)
Quarter: 2020Q2

REPORT INFORMATION
  Report Type: Spontaneous
  Country: US (occurrence: US)
  Receive Date: 20200525
  Receipt Date: 20200525
  Transmission Date: 20200714
  Serious: Yes (Other)
  Sender: FDA-Public Use
  Company Number: NVSC2019US047187

PATIENT

DRUGS (10)
  1. VINBLASTINE [Suspect]
     Active Substance: VINBLASTINE
     Indication: OSTEOSARCOMA
     Dosage: UNK
     Route: 065
     Dates: start: 201512, end: 201602
  2. ETOPOSIDE. [Suspect]
     Active Substance: ETOPOSIDE
     Indication: OSTEOSARCOMA
     Dosage: UNK
     Route: 065
     Dates: start: 201406, end: 201501
  3. METHOTREXATE. [Suspect]
     Active Substance: METHOTREXATE
     Indication: OSTEOSARCOMA
     Dosage: 2 UNK, CYCLIC
     Route: 065
     Dates: start: 201510, end: 201511
  4. MIFAMURTIDA [Suspect]
     Active Substance: MIFAMURTIDE
     Indication: OSTEOSARCOMA
     Dosage: UNK
     Route: 065
     Dates: start: 201404
  5. CYCLOPHOSPHAMIDE. [Suspect]
     Active Substance: CYCLOPHOSPHAMIDE
     Indication: OSTEOSARCOMA
     Dosage: UNK
     Route: 065
     Dates: start: 201512, end: 201602
  6. PAZOPANIB [Suspect]
     Active Substance: PAZOPANIB
     Indication: OSTEOSARCOMA
     Dosage: UNK
     Route: 065
     Dates: start: 201501, end: 201509
  7. IFOSFAMIDE. [Suspect]
     Active Substance: IFOSFAMIDE
     Indication: OSTEOSARCOMA
     Dosage: UNK
     Route: 065
     Dates: start: 201406, end: 201501
  8. ZOLEDRONIC ACID [Suspect]
     Active Substance: ZOLEDRONIC ACID
     Indication: OSTEOSARCOMA
     Dosage: UNK
     Route: 065
     Dates: start: 201406, end: 201501
  9. NIVOLUMAB [Suspect]
     Active Substance: NIVOLUMAB
     Indication: OSTEOSARCOMA
     Dosage: UNK (4DOSES)
     Route: 065
  10. SUNITINIB [Suspect]
     Active Substance: SUNITINIB
     Indication: OSTEOSARCOMA
     Dosage: UNK
     Route: 065
     Dates: start: 201512, end: 201602

REACTIONS (6)
  - Malignant neoplasm progression [Unknown]
  - Metastases to abdominal cavity [Unknown]
  - Product use in unapproved indication [Unknown]
  - Metastases to thorax [Unknown]
  - Osteosarcoma [Unknown]
  - Metastases to lung [Unknown]
